FAERS Safety Report 5492690-X (Version None)
Quarter: 2007Q4

REPORT INFORMATION
  Report Type: 
  Country: None (occurrence: None)
  Receive Date: 20071016
  Receipt Date: 20071002
  Transmission Date: 20080405
  Serious: Yes (Hospitalization)
  Sender: FDA-Public Use
  Company Number: B0490523A

PATIENT
  Age: 13 Year
  Sex: Male

DRUGS (7)
  1. ZIDOVUDINE [Suspect]
     Indication: HIV INFECTION
  2. LAMIVUDINE [Suspect]
     Indication: HIV INFECTION
  3. EFAVIRENZ [Suspect]
     Indication: HIV INFECTION
  4. LOPINAVIR AND RITONAVIR [Suspect]
     Indication: HIV INFECTION
  5. AZITHROMYCIN [Concomitant]
  6. CO-TRIMOXAZOLE [Concomitant]
  7. CLINDAMYCIN HCL [Concomitant]

REACTIONS (4)
  - BLOOD ALKALINE PHOSPHATASE DECREASED [None]
  - IMMUNE RECONSTITUTION SYNDROME [None]
  - LEUKOPENIA [None]
  - MYCOBACTERIUM AVIUM COMPLEX INFECTION [None]
